FAERS Safety Report 9117493 (Version 3)
Quarter: 2013Q1

REPORT INFORMATION
  Report Type: Spontaneous
  Country: JP (occurrence: JP)
  Receive Date: 20130225
  Receipt Date: 20130329
  Transmission Date: 20140127
  Serious: Yes (Hospitalization)
  Sender: FDA-Public Use
  Company Number: JP-VERTEX PHARMACEUTICALS INC.-2013-002594

PATIENT
  Age: 64 Year
  Sex: Male

DRUGS (5)
  1. TELAVIC [Suspect]
     Indication: CHRONIC HEPATITIS C
     Dosage: 2250 MG, QD
     Route: 048
     Dates: start: 20130213, end: 20130216
  2. RIBAVIRIN [Concomitant]
     Dosage: 800 MG, QD
     Dates: start: 20130213, end: 20130218
  3. PEGINTERFERON ALFA-2B [Concomitant]
     Dosage: 1.5 ?G/KG, QW
     Route: 058
     Dates: start: 20130213, end: 20130213
  4. URSO [Concomitant]
     Dosage: 900 MG, QD
  5. LOXONIN [Concomitant]
     Dosage: 60 MG, QD/PRN
     Route: 048
     Dates: start: 20130213, end: 20130219

REACTIONS (2)
  - Erythema multiforme [Recovered/Resolved]
  - Hyperuricaemia [Recovered/Resolved]
